FAERS Safety Report 18167061 (Version 1)
Quarter: 2020Q3

REPORT INFORMATION
  Report Type: Spontaneous
  Country: US (occurrence: US)
  Receive Date: 20200818
  Receipt Date: 20200818
  Transmission Date: 20201103
  Serious: No
  Sender: FDA-Public Use
  Company Number: US-OTSUKA-2019_041674

PATIENT
  Sex: Male

DRUGS (1)
  1. ABILIFY [Suspect]
     Active Substance: ARIPIPRAZOLE
     Indication: PRODUCT USED FOR UNKNOWN INDICATION
     Dosage: FOR 2 YEARS
     Route: 065
     Dates: start: 2017

REACTIONS (3)
  - Gambling disorder [Recovering/Resolving]
  - Adverse event [Recovering/Resolving]
  - Impulsive behaviour [Recovering/Resolving]
